FAERS Safety Report 5931139-7 (Version None)
Quarter: 2008Q4

REPORT INFORMATION
  Report Type: 
  Country: None (occurrence: None)
  Receive Date: 20081027
  Receipt Date: 20081016
  Transmission Date: 20090506
  Serious: Yes (Other)
  Sender: FDA-Public Use
  Company Number: PHHY2008TR24928

PATIENT
  Age: 60 Year
  Sex: Male

DRUGS (5)
  1. STALEVO 100 [Suspect]
     Indication: PARKINSON'S DISEASE
     Dosage: 100 MG, QID
     Route: 048
  2. STALEVO 100 [Suspect]
     Dosage: 50 MG, QID
     Route: 048
  3. PRAMIPEXOLE DIHYDROCHLORIDE [Concomitant]
     Dosage: 1 DF, TID
  4. AZILECT [Concomitant]
     Dosage: 1 DF, BID
  5. AZILECT [Concomitant]
     Dosage: 50 MG

REACTIONS (1)
  - AKATHISIA [None]
